FAERS Safety Report 25844024 (Version 1)
Quarter: 2025Q3

REPORT INFORMATION
  Report Type: Report from Study
  Country: US (occurrence: US)
  Receive Date: 20250925
  Receipt Date: 20250925
  Transmission Date: 20251020
  Serious: Yes (Hospitalization)
  Sender: ROCHE
  Company Number: US-ROCHE-10000394819

PATIENT
  Age: 82 Year
  Sex: Female

DRUGS (1)
  1. ACTEMRA ACTPEN [Suspect]
     Active Substance: TOCILIZUMAB
     Indication: Polymyalgia rheumatica
     Dosage: INJECT THE CONTENTS OF ONE DEVICE UNDER THE SKIN ONCE WEEKLY (EVERY 7 DAYS)
     Route: 058

REACTIONS (2)
  - Fall [Unknown]
  - Off label use [Unknown]
